FAERS Safety Report 4562374-0 (Version None)
Quarter: 2005Q1

REPORT INFORMATION
  Report Type: 
  Country: None (occurrence: None)
  Receive Date: 20050127
  Receipt Date: 20050120
  Transmission Date: 20050727
  Serious: Yes (Other)
  Sender: FDA-Public Use
  Company Number: 200510558GDDC

PATIENT
  Age: 66 Year
  Sex: Male

DRUGS (5)
  1. NATRIX [Suspect]
     Indication: HYPERTENSION
     Route: 048
     Dates: start: 20040723, end: 20040731
  2. MAINTATE [Concomitant]
     Dates: start: 20031025
  3. FLUITRAN [Concomitant]
     Dates: start: 20031025, end: 20040723
  4. DIOVAN [Concomitant]
     Dates: start: 20031212
  5. RIBALL [Concomitant]
     Dates: start: 20040427

REACTIONS (2)
  - DERMATITIS EXFOLIATIVE [None]
  - LYMPHOCYTE STIMULATION TEST POSITIVE [None]
